FAERS Safety Report 22325062 (Version 1)
Quarter: 2023Q2

REPORT INFORMATION
  Report Type: Spontaneous
  Country: US (occurrence: None)
  Receive Date: 20230513
  Receipt Date: 20230513
  Transmission Date: 20230721
  Serious: Yes (Other)
  Sender: FDA-Public Use
  Company Number: None

PATIENT
  Age: 70 Year
  Sex: Female
  Weight: 103.5 kg

DRUGS (3)
  1. DEXAMETHASONE\NEOMYCIN SULFATE\THIABENDAZOLE [Suspect]
     Active Substance: DEXAMETHASONE\NEOMYCIN SULFATE\THIABENDAZOLE
     Indication: Product packaging confusion
     Dosage: OTHER QUANTITY : 1 DROP(S);?FREQUENCY : DAILY;?
     Route: 047
     Dates: start: 20230511, end: 20230511
  2. REFRESH SOLUTION NOS [Suspect]
     Active Substance: CARBOXYMETHYLCELLULOSE SODIUM\GLYCERIN
  3. ALBUTEROL [Concomitant]
     Active Substance: ALBUTEROL

REACTIONS (7)
  - Product packaging confusion [None]
  - Feeling abnormal [None]
  - Eye irritation [None]
  - Eye pain [None]
  - Lacrimation increased [None]
  - Eye swelling [None]
  - Circumstance or information capable of leading to medication error [None]

NARRATIVE: CASE EVENT DATE: 20230511
